FAERS Safety Report 9341831 (Version 1)
Quarter: 2013Q2

REPORT INFORMATION
  Report Type: Spontaneous
  Country: US (occurrence: US)
  Receive Date: 20130611
  Receipt Date: 20130611
  Transmission Date: 20140414
  Serious: No
  Sender: FDA-Public Use
  Company Number: US-TEVA-411207USA

PATIENT
  Sex: Female

DRUGS (1)
  1. QNASL [Suspect]
     Indication: HYPERSENSITIVITY
     Route: 045
     Dates: start: 20130607

REACTIONS (3)
  - Headache [Unknown]
  - Nausea [Unknown]
  - Nasal discomfort [Unknown]
